FAERS Safety Report 22060768 (Version 1)
Quarter: 2023Q1

REPORT INFORMATION
  Report Type: Spontaneous
  Country: LU (occurrence: LU)
  Receive Date: 20230303
  Receipt Date: 20230303
  Transmission Date: 20230418
  Serious: Yes (Life-Threatening, Hospitalization)
  Sender: FDA-Public Use
  Company Number: None

PATIENT
  Age: 66 Year
  Sex: Male
  Weight: 87 kg

DRUGS (2)
  1. PACLITAXEL [Suspect]
     Active Substance: PACLITAXEL
     Indication: Prostate cancer metastatic
     Dosage: 4TH CHEMOTHERAPY CYCLE
     Dates: start: 20230119, end: 20230119
  2. PACLITAXEL [Suspect]
     Active Substance: PACLITAXEL
     Dosage: 3RD CHEMOTHERAPY CYCLE ,
     Dates: start: 20230110, end: 20230110

REACTIONS (3)
  - Anaphylactic shock [Recovered/Resolved]
  - Septic shock [Recovered/Resolved]
  - Cardiac arrest [Recovered/Resolved]

NARRATIVE: CASE EVENT DATE: 20230110
